FAERS Safety Report 7687027-1 (Version None)
Quarter: 2011Q3

REPORT INFORMATION
  Report Type: 
  Country: None (occurrence: None)
  Receive Date: 20110816
  Receipt Date: 20110809
  Transmission Date: 20111222
  Serious: Yes (Death, Other)
  Sender: FDA-Public Use
  Company Number: US-BRISTOL-MYERS SQUIBB COMPANY-15952617

PATIENT
  Age: 64 Year
  Sex: Male
  Weight: 62 kg

DRUGS (4)
  1. CARBOPLATIN [Suspect]
     Indication: NON-SMALL CELL LUNG CANCER
     Dosage: LAST DOSE:15DEC09; RECENT COURSE TOTAL DOSE 1743MG.
     Dates: start: 20090908
  2. ERBITUX [Suspect]
     Indication: NON-SMALL CELL LUNG CANCER
     Dosage: LAST DOSE:29DEC09; RECENT COURSE TOTAL DOSE 4106MG
     Dates: start: 20090908
  3. TAXOL [Suspect]
     Indication: NON-SMALL CELL LUNG CANCER
     Dosage: LAST DOSE:15DEC09; RECENT COURSE TOTAL DOSE 730MG.
     Dates: start: 20090908
  4. COUMADIN [Suspect]
     Indication: ATRIAL FIBRILLATION

REACTIONS (4)
  - OESOPHAGEAL HAEMORRHAGE [None]
  - SUPRAVENTRICULAR TACHYCARDIA [None]
  - CEREBROVASCULAR ACCIDENT [None]
  - OESOPHAGEAL STENOSIS [None]
